FAERS Safety Report 5682187-6 (Version None)
Quarter: 2008Q1

REPORT INFORMATION
  Report Type: 
  Country: None (occurrence: None)
  Receive Date: 20080325
  Receipt Date: 20080310
  Transmission Date: 20080703
  Serious: Yes (Death, Other)
  Sender: FDA-Public Use
  Company Number: 2008S1003951

PATIENT
  Age: 40 Year
  Sex: Male

DRUGS (9)
  1. METFORMIN 1000 MG TABLETS ( NO PREF NAME) (1000 MG) [Suspect]
     Indication: DIABETES MELLITUS
     Dosage: ORAL
     Route: 048
  2. GLYBURIDE [Suspect]
  3. CORDARONE [Concomitant]
  4. PREVISCAN [Concomitant]
  5. CIPROFLOXACINE MERCK [Concomitant]
  6. SPIRAMYCIN [Concomitant]
  7. RISPERDAL [Concomitant]
  8. FUROSEMIDE [Concomitant]
  9. CITALOPRAM HYDROBROMIDE [Concomitant]

REACTIONS (6)
  - CARDIAC DISORDER [None]
  - DEPRESSION [None]
  - DIABETES MELLITUS [None]
  - HEPATITIS [None]
  - MANIA [None]
  - RENAL FAILURE [None]
